FAERS Safety Report 6967599-2 (Version None)
Quarter: 2010Q3

REPORT INFORMATION
  Report Type: 
  Country: None (occurrence: None)
  Receive Date: 20100901
  Receipt Date: 20100818
  Transmission Date: 20110219
  Serious: Yes (Life-Threatening, Hospitalization, Other)
  Sender: FDA-Public Use
  Company Number: 1000015890

PATIENT
  Age: 32 Year
  Sex: Male
  Weight: 65.7716 kg

DRUGS (1)
  1. CELEXA [Suspect]
     Dosage: 20 MG (20 MG, 1 IN 1 D)

REACTIONS (3)
  - GASTRIC ULCER [None]
  - HAEMOGLOBIN DECREASED [None]
  - UPPER GASTROINTESTINAL HAEMORRHAGE [None]
